FAERS Safety Report 7716957-7 (Version None)
Quarter: 2011Q3

REPORT INFORMATION
  Report Type: 
  Country: None (occurrence: None)
  Receive Date: 20110829
  Receipt Date: 20110825
  Transmission Date: 20111222
  Serious: Yes (Other)
  Sender: FDA-Public Use
  Company Number: US-ABBOTT-11P-163-0840747-00

PATIENT
  Sex: Female
  Weight: 67.192 kg

DRUGS (1)
  1. HUMIRA [Suspect]
     Indication: RHEUMATOID ARTHRITIS
     Dates: start: 20090101, end: 20110816

REACTIONS (2)
  - OSTEOARTHRITIS [None]
  - DRUG EFFECT DECREASED [None]
